FAERS Safety Report 18052502 (Version 2)
Quarter: 2020Q3

REPORT INFORMATION
  Report Type: Report from Study
  Country: BR (occurrence: BR)
  Receive Date: 20200721
  Receipt Date: 20200801
  Transmission Date: 20201103
  Serious: Yes (Other)
  Sender: FDA-Public Use
  Company Number: NVSC2019BR031131

PATIENT
  Age: 31 Year
  Sex: Male

DRUGS (7)
  1. COSENTYX [Suspect]
     Active Substance: SECUKINUMAB
     Dosage: 1 DF, OT
     Route: 065
     Dates: start: 20191028
  2. COSENTYX [Suspect]
     Active Substance: SECUKINUMAB
     Dosage: 1 DF, OT
     Route: 065
     Dates: start: 20200103
  3. COSENTYX [Suspect]
     Active Substance: SECUKINUMAB
     Dosage: 1 DF, OT
     Route: 065
     Dates: start: 20200204
  4. COSENTYX [Suspect]
     Active Substance: SECUKINUMAB
     Indication: PSORIATIC ARTHROPATHY
     Dosage: 300 MG, UNKNOWN
     Route: 065
     Dates: start: 20190411
  5. COSENTYX [Suspect]
     Active Substance: SECUKINUMAB
     Dosage: UNK
     Route: 058
     Dates: start: 20200616
  6. COSENTYX [Suspect]
     Active Substance: SECUKINUMAB
     Dosage: 1 DF, OT
     Route: 065
     Dates: start: 20191203
  7. COSENTYX [Suspect]
     Active Substance: SECUKINUMAB
     Indication: PSORIASIS
     Dosage: 150 MG
     Route: 065
     Dates: start: 20191104

REACTIONS (27)
  - Malaise [Unknown]
  - Ear pruritus [Not Recovered/Not Resolved]
  - Pain [Not Recovered/Not Resolved]
  - Agitation [Not Recovered/Not Resolved]
  - Drug ineffective [Not Recovered/Not Resolved]
  - Pruritus [Not Recovered/Not Resolved]
  - Skin exfoliation [Recovered/Resolved]
  - Pain in extremity [Unknown]
  - Weight bearing difficulty [Not Recovered/Not Resolved]
  - Ear pain [Not Recovered/Not Resolved]
  - Erythema [Not Recovered/Not Resolved]
  - Emotional distress [Not Recovered/Not Resolved]
  - Asthenia [Not Recovered/Not Resolved]
  - Insomnia [Not Recovered/Not Resolved]
  - Mobility decreased [Not Recovered/Not Resolved]
  - Skin burning sensation [Not Recovered/Not Resolved]
  - Bone pain [Unknown]
  - Incorrect dose administered [Not Recovered/Not Resolved]
  - Influenza [Recovered/Resolved]
  - Inner ear inflammation [Not Recovered/Not Resolved]
  - Headache [Not Recovered/Not Resolved]
  - Fall [Unknown]
  - Haemorrhage [Recovered/Resolved]
  - Vomiting [Unknown]
  - Psoriasis [Not Recovered/Not Resolved]
  - Skin odour abnormal [Not Recovered/Not Resolved]
  - Muscular weakness [Not Recovered/Not Resolved]

NARRATIVE: CASE EVENT DATE: 20191001
